FAERS Safety Report 6856400-3 (Version None)
Quarter: 2010Q3

REPORT INFORMATION
  Report Type: 
  Country: None (occurrence: None)
  Receive Date: 20100719
  Receipt Date: 20100714
  Transmission Date: 20110219
  Serious: Yes (Hospitalization)
  Sender: FDA-Public Use
  Company Number: US-PFIZER INC-2010087310

PATIENT
  Sex: Male
  Weight: 61.7 kg

DRUGS (10)
  1. SUNITINIB MALATE [Suspect]
     Indication: MALIGNANT NEOPLASM OF ISLETS OF LANGERHANS
     Dosage: 25 MG, 4/2 SCHEDULE
     Route: 048
     Dates: start: 20100610, end: 20100708
  2. CLONIDINE [Concomitant]
     Indication: HYPERTENSION
     Dosage: UNK
  3. FELODIPINE [Concomitant]
     Indication: HYPERTENSION
     Dosage: UNK
  4. ALTACE [Concomitant]
     Indication: HYPERTENSION
     Dosage: UNK
  5. LEVOTHYROXINE [Concomitant]
     Indication: HYPOTHYROIDISM
     Dosage: UNK
  6. PROTONIX [Concomitant]
     Indication: DYSPEPSIA
     Dosage: UNK
  7. GLIPIZIDE [Concomitant]
     Indication: DIABETES MELLITUS
     Dosage: UNK
  8. LASIX [Concomitant]
     Dosage: UNK
  9. LOMOTIL [Concomitant]
     Indication: DIARRHOEA
  10. REGLAN [Concomitant]
     Indication: DYSPEPSIA

REACTIONS (2)
  - BLOOD CREATININE INCREASED [None]
  - HYPOMAGNESAEMIA [None]
